FAERS Safety Report 14449456 (Version 2)
Quarter: 2018Q1

REPORT INFORMATION
  Report Type: Spontaneous
  Country: FR (occurrence: FR)
  Receive Date: 20180127
  Receipt Date: 20180223
  Transmission Date: 20180509
  Serious: Yes (Other)
  Sender: FDA-Public Use
  Company Number: FR-BRISTOL-MYERS SQUIBB COMPANY-BMS-2018-004673

PATIENT
  Age: 33 Year
  Sex: Female
  Weight: 64 kg

DRUGS (1)
  1. OPDIVO [Suspect]
     Active Substance: NIVOLUMAB
     Indication: MALIGNANT MELANOMA
     Route: 051

REACTIONS (5)
  - Pancreatitis [Not Recovered/Not Resolved]
  - Vertigo [Recovering/Resolving]
  - Vestibular disorder [Recovering/Resolving]
  - Arthralgia [Recovered/Resolved]
  - Hepatocellular injury [Recovered/Resolved]

NARRATIVE: CASE EVENT DATE: 2017
